FAERS Safety Report 13342147 (Version 2)
Quarter: 2017Q1

REPORT INFORMATION
  Report Type: Report from Study
  Country: CA (occurrence: CA)
  Receive Date: 20170316
  Receipt Date: 20170322
  Transmission Date: 20170428
  Serious: Yes (Other)
  Sender: FDA-Public Use
  Company Number: CA-AMGEN-CANSL2017037420

PATIENT
  Age: 71 Year
  Sex: Female

DRUGS (2)
  1. REPATHA [Suspect]
     Active Substance: EVOLOCUMAB
     Indication: ARTERIOSCLEROSIS
     Dosage: 140 MG/ML, UNK
     Route: 065
     Dates: start: 20170206
  2. REPATHA [Suspect]
     Active Substance: EVOLOCUMAB
     Indication: BLOOD CHOLESTEROL INCREASED

REACTIONS (15)
  - Musculoskeletal pain [Unknown]
  - Tremor [Recovered/Resolved]
  - Influenza [Unknown]
  - Fall [Recovered/Resolved]
  - Pain in extremity [Unknown]
  - Syncope [Unknown]
  - Loss of consciousness [Unknown]
  - Urinary incontinence [Recovered/Resolved]
  - Somnolence [Unknown]
  - Abdominal discomfort [Unknown]
  - Chills [Recovered/Resolved]
  - Nausea [Recovered/Resolved]
  - Mobility decreased [Unknown]
  - Vomiting projectile [Recovered/Resolved]
  - Electrolyte imbalance [Unknown]

NARRATIVE: CASE EVENT DATE: 20170308
